FAERS Safety Report 8966124 (Version 3)
Quarter: 2013Q1

REPORT INFORMATION
  Report Type: Spontaneous
  Country: US (occurrence: US)
  Receive Date: 20121217
  Receipt Date: 20130305
  Transmission Date: 20140127
  Serious: Yes (Hospitalization)
  Sender: FDA-Public Use
  Company Number: US-AMGEN-USASP2012080217

PATIENT
  Age: 80 Year
  Sex: Female

DRUGS (5)
  1. PROLIA [Suspect]
     Indication: PRODUCT USED FOR UNKNOWN INDICATION
     Dosage: UNK
     Dates: start: 2004, end: 20120410
  2. CALCIUM [Concomitant]
     Dosage: 200 MG, QD
  3. CALCIUM CITRATE [Concomitant]
     Dosage: 630 MG, BID
  4. VITAMIN D /00107901/ [Concomitant]
     Dosage: 400 UNIT, BID
     Route: 042
  5. CALCIUM +VIT D [Concomitant]
     Dosage: 400 UNIT, BID

REACTIONS (5)
  - Lung neoplasm malignant [Unknown]
  - Confusional state [Unknown]
  - Dehydration [Unknown]
  - Renal impairment [Unknown]
  - Blood parathyroid hormone decreased [Unknown]
